FAERS Safety Report 20427392 (Version 1)
Quarter: 2022Q1

REPORT INFORMATION
  Report Type: Report from Study
  Country: US (occurrence: US)
  Receive Date: 20220204
  Receipt Date: 20220204
  Transmission Date: 20220423
  Serious: No
  Sender: FDA-Public Use
  Company Number: US-EXELIXIS-CABO-21044361

PATIENT
  Sex: Male
  Weight: 119 kg

DRUGS (1)
  1. CABOMETYX [Suspect]
     Active Substance: CABOZANTINIB S-MALATE
     Indication: Renal cancer
     Dosage: 20 MG, QD
     Route: 048
     Dates: start: 20210505

REACTIONS (4)
  - Skin exfoliation [Unknown]
  - Skin lesion [Unknown]
  - Skin ulcer [Recovering/Resolving]
  - Blood cholesterol increased [Unknown]
